FAERS Safety Report 4323695-X (Version None)
Quarter: 2004Q1

REPORT INFORMATION
  Report Type: 
  Country: None (occurrence: None)
  Receive Date: 20040323
  Receipt Date: 20040317
  Transmission Date: 20041129
  Serious: Yes (Hospitalization)
  Sender: FDA-Public Use
  Company Number: 04-NIP00030 (1)

PATIENT
  Age: 54 Year
  Sex: Female

DRUGS (4)
  1. NIPENT [Suspect]
     Indication: ACUTE MYELOID LEUKAEMIA
     Dosage: 7.2, 7.2, 4.3 (DAY -6, -5, -4), INTRAVENOUS
     Route: 042
     Dates: start: 20040129
  2. MITOXANTRONE [Suspect]
     Dosage: 57.6 MG (DAY -6), INTRAVENOUS
     Route: 042
     Dates: start: 20040129
  3. CYTARABINE [Suspect]
  4. GANCICLOVIR [Concomitant]

REACTIONS (1)
  - CYTOMEGALOVIRUS ANTIGEN POSITIVE [None]
